FAERS Safety Report 10346274 (Version 2)
Quarter: 2014Q3

REPORT INFORMATION
  Report Type: Report from Study
  Country: US (occurrence: US)
  Receive Date: 20140728
  Receipt Date: 20140728
  Transmission Date: 20150326
  Serious: Yes (Other)
  Sender: FDA-Public Use
  Company Number: PHEH2014US013661

PATIENT
  Sex: Female

DRUGS (1)
  1. AFINITOR [Suspect]
     Active Substance: EVEROLIMUS
     Indication: RENAL CANCER
     Dosage: 5 MG, QD
     Route: 048
     Dates: start: 20140501

REACTIONS (5)
  - Central nervous system lesion [Unknown]
  - Hypoaesthesia [Unknown]
  - Angioedema [Unknown]
  - Hypersensitivity [Unknown]
  - Brain oedema [Unknown]
